FAERS Safety Report 8761091 (Version 3)
Quarter: 2012Q4

REPORT INFORMATION
  Report Type: 
  Country: JP (occurrence: JP)
  Receive Date: 20120830
  Receipt Date: 20121120
  Transmission Date: 20130627
  Serious: Yes (Life-Threatening, Hospitalization, Other)
  Sender: FDA-Public Use
  Company Number: JP-ABBOTT-12P-087-0973863-00

PATIENT
  Age: 52 Year
  Sex: Male
  Weight: 71.7 kg

DRUGS (6)
  1. KLARICID TABLETS [Suspect]
     Indication: NASOPHARYNGITIS
     Route: 048
     Dates: start: 20120815, end: 20120822
  2. SODIUM VALPROATE [Concomitant]
     Indication: EPILEPSY
     Route: 048
     Dates: end: 20120827
  3. PHENYTOIN [Concomitant]
     Indication: EPILEPSY
     Dosage: 100mg in the morning, 125mg in the evening
     Route: 048
     Dates: end: 20120827
  4. CARBAMAZEPINE [Concomitant]
     Indication: EPILEPSY
     Dosage: 200mg in the morning, 400mg in the evening
     Route: 051
     Dates: end: 20120827
  5. ACETAZOLAMIDE [Concomitant]
     Indication: EPILEPSY
     Route: 048
     Dates: end: 20120827
  6. PL COMBINATION GRANULES [Concomitant]
     Indication: NASOPHARYNGITIS
     Route: 048
     Dates: start: 20120806, end: 20120824

REACTIONS (3)
  - Hepatitis fulminant [Recovering/Resolving]
  - Hepatic encephalopathy [Not Recovered/Not Resolved]
  - Hepatitis C [Unknown]
